FAERS Safety Report 9079475 (Version 1)
Quarter: 2013Q1

REPORT INFORMATION
  Report Type: Report from Study
  Country: US (occurrence: US)
  Receive Date: 20130130
  Receipt Date: 20130130
  Transmission Date: 20140127
  Serious: No
  Sender: FDA-Public Use
  Company Number: US-ABBOTT-12P-163-0972491-00

PATIENT
  Age: 52 Year
  Sex: Female

DRUGS (8)
  1. HUMIRA 40 MG/0.8 ML PEN [Suspect]
     Indication: CROHN^S DISEASE
     Dates: start: 20120514
  2. IMURAN [Concomitant]
     Indication: CROHN^S DISEASE
     Dosage: 50MG 1 TABLET DAILY
  3. HUMALOG [Concomitant]
     Indication: DIABETES MELLITUS
     Dosage: INSULIN SLIDING SCALE BEFORE MEALS
     Route: 058
  4. LANTUS [Concomitant]
     Indication: DIABETES MELLITUS
     Dosage: 12 UNITS DAILY
  5. OPANA [Concomitant]
     Indication: PAIN
     Dosage: ER 30MG THREE TIMES DAILY
  6. OXYCODONE [Concomitant]
     Indication: PAIN
     Dosage: IR 15MG TWICE DAILY
  7. ADVAIR [Concomitant]
     Indication: ASTHMA
  8. LORAZEPAM [Concomitant]
     Indication: ANXIETY

REACTIONS (1)
  - Injection site pain [Recovered/Resolved]
